FAERS Safety Report 23089801 (Version 2)
Quarter: 2023Q4

REPORT INFORMATION
  Report Type: Spontaneous
  Country: US (occurrence: None)
  Receive Date: 20231020
  Receipt Date: 20231023
  Transmission Date: 20240109
  Serious: Yes (Other)
  Sender: FDA-Public Use
  Company Number: US-ROCHE-3439273

PATIENT
  Age: 53 Year
  Sex: Female
  Weight: 81.72 kg

DRUGS (4)
  1. ACTIVASE [Suspect]
     Active Substance: ALTEPLASE
     Indication: Cerebrovascular accident
     Dosage: A BOLUS OF 7.3 ML, THAN INFUSED 66.1MG
     Route: 042
     Dates: start: 20231011, end: 20231011
  2. ACTIVASE [Suspect]
     Active Substance: ALTEPLASE
  3. ACTIVASE [Suspect]
     Active Substance: ALTEPLASE
     Indication: Ischaemic stroke
  4. ACTIVASE [Suspect]
     Active Substance: ALTEPLASE

REACTIONS (3)
  - Treatment delayed [Unknown]
  - Device defective [Unknown]
  - No adverse event [Unknown]

NARRATIVE: CASE EVENT DATE: 20231011
